FAERS Safety Report 18993955 (Version 2)
Quarter: 2021Q2

REPORT INFORMATION
  Report Type: Report from Study
  Country: US (occurrence: US)
  Receive Date: 20210310
  Receipt Date: 20210512
  Transmission Date: 20210717
  Serious: No
  Sender: FDA-Public Use
  Company Number: NVSC2021US048760

PATIENT
  Sex: Female

DRUGS (1)
  1. ENTRESTO [Suspect]
     Active Substance: SACUBITRIL\VALSARTAN
     Indication: PRODUCT USED FOR UNKNOWN INDICATION
     Dosage: 50 MG(24/26 MG), BID
     Route: 048
     Dates: start: 20210116

REACTIONS (6)
  - Ejection fraction decreased [Not Recovered/Not Resolved]
  - Obsessive-compulsive disorder [Unknown]
  - Depression [Unknown]
  - Product dose omission issue [Unknown]
  - Stress [Unknown]
  - Fatigue [Unknown]
